FAERS Safety Report 6051373-8 (Version None)
Quarter: 2009Q1

REPORT INFORMATION
  Report Type: 
  Country: None (occurrence: None)
  Receive Date: 20090121
  Receipt Date: 20090121
  Transmission Date: 20090719
  Serious: Yes (Death, Hospitalization)
  Sender: FDA-Public Use
  Company Number: None

PATIENT
  Age: 63 Year
  Sex: Male
  Weight: 73.2 kg

DRUGS (9)
  1. AVASTIN [Suspect]
     Indication: COLON CANCER
     Dosage: 515MG -7.5MG/KG- OVER 30 MIN Q2 WKS IV DRIP
     Route: 041
     Dates: start: 20060517, end: 20080924
  2. AVASTIN [Suspect]
     Indication: COLON CANCER
     Dosage: 515MG -7.5MG/KG- OVER 30 MIN Q2 WKS IV DRIP
     Route: 041
     Dates: start: 20081203, end: 20081230
  3. COUMADIN [Concomitant]
  4. ALOXI [Concomitant]
  5. BENADRYL [Concomitant]
  6. DECADRON [Concomitant]
  7. TAGAMENT [Concomitant]
  8. SOLU-MEDROL [Concomitant]
  9. OXAIPLATIN [Concomitant]

REACTIONS (6)
  - BACK PAIN [None]
  - COAGULOPATHY [None]
  - FEELING HOT [None]
  - HAEMORRHAGE INTRACRANIAL [None]
  - INFUSION RELATED REACTION [None]
  - UNRESPONSIVE TO STIMULI [None]
